FAERS Safety Report 18768869 (Version 1)
Quarter: 2021Q1

REPORT INFORMATION
  Report Type: Spontaneous
  Country: US (occurrence: US)
  Receive Date: 20210121
  Receipt Date: 20210121
  Transmission Date: 20210419
  Serious: Yes (Hospitalization)
  Sender: FDA-Public Use
  Company Number: None

PATIENT
  Age: 72 Year
  Sex: Female
  Weight: 96.8 kg

DRUGS (1)
  1. LENALIDOMIDE (CC?5013) [Suspect]
     Active Substance: LENALIDOMIDE
     Indication: PRODUCT USED FOR UNKNOWN INDICATION
     Dates: end: 20210115

REACTIONS (6)
  - COVID-19 [None]
  - Pyrexia [None]
  - Atrial fibrillation [None]
  - Fall [None]
  - Blood glucose decreased [None]
  - Acute myocardial infarction [None]

NARRATIVE: CASE EVENT DATE: 20210116
